FAERS Safety Report 10297062 (Version 2)
Quarter: 2014Q3

REPORT INFORMATION
  Report Type: Spontaneous
  Country: US (occurrence: US)
  Receive Date: 20140711
  Receipt Date: 20140819
  Transmission Date: 20150326
  Serious: No
  Sender: FDA-Public Use
  Company Number: US-009507513-1406USA013737

PATIENT
  Sex: Female
  Weight: 78.91 kg

DRUGS (1)
  1. NEXPLANON [Suspect]
     Active Substance: ETONOGESTREL
     Dosage: UNK UNK, UNKNOWN
     Route: 059
     Dates: start: 20130226, end: 20140611

REACTIONS (2)
  - Device breakage [Recovered/Resolved]
  - No adverse event [Unknown]
